FAERS Safety Report 9298370 (Version 3)
Quarter: 2013Q3

REPORT INFORMATION
  Report Type: Spontaneous
  Country: US (occurrence: US)
  Receive Date: 20130520
  Receipt Date: 20130709
  Transmission Date: 20140515
  Serious: No
  Sender: FDA-Public Use
  Company Number: US-PFIZER INC-2013150026

PATIENT
  Sex: Female

DRUGS (4)
  1. LEVOXYL [Suspect]
     Indication: THYROID DISORDER
     Dosage: 88 UG, UNK
  2. LEVOTHYROXINE SODIUM [Suspect]
     Indication: THYROID DISORDER
     Dosage: UNK
  3. ARMOUR THYROID [Suspect]
     Indication: THYROID DISORDER
     Dosage: UNK
  4. SYNTHROID [Suspect]
     Indication: THYROID DISORDER
     Dosage: UNK

REACTIONS (5)
  - Dyspnoea [Unknown]
  - Drug hypersensitivity [Unknown]
  - Crying [Unknown]
  - Myalgia [Recovered/Resolved]
  - Oedema peripheral [Recovered/Resolved]
